FAERS Safety Report 20857983 (Version 1)
Quarter: 2022Q2

REPORT INFORMATION
  Report Type: Spontaneous
  Country: AU (occurrence: AU)
  Receive Date: 20220521
  Receipt Date: 20220521
  Transmission Date: 20220720
  Serious: Yes (Hospitalization)
  Sender: FDA-Public Use
  Company Number: AU-NOVARTISPH-NVSC2022AU116490

PATIENT
  Age: 65 Year
  Sex: Female

DRUGS (1)
  1. MAYZENT [Suspect]
     Active Substance: SIPONIMOD
     Indication: Secondary progressive multiple sclerosis
     Dosage: 2 MG, UNKNOWN
     Route: 065

REACTIONS (6)
  - Atrial fibrillation [Unknown]
  - Hypotension [Unknown]
  - Pyrexia [Unknown]
  - Confusional state [Unknown]
  - Dizziness [Unknown]
  - Incorrect dose administered [Unknown]
